FAERS Safety Report 18600258 (Version 1)
Quarter: 2020Q4

REPORT INFORMATION
  Report Type: Report from Study
  Country: DE (occurrence: DE)
  Receive Date: 20201210
  Receipt Date: 20201210
  Transmission Date: 20210114
  Serious: Yes (Other)
  Sender: FDA-Public Use
  Company Number: DE-MYLANLABS-2020M1099883

PATIENT
  Age: 77 Year
  Sex: Female

DRUGS (3)
  1. METHOTREXATE. [Suspect]
     Active Substance: METHOTREXATE
     Indication: PRODUCT USED FOR UNKNOWN INDICATION
     Dosage: UNK UNK, UNKNOWN
     Route: 065
  2. CORTISONE [Concomitant]
     Active Substance: CORTISONE
     Indication: RHEUMATIC DISORDER
     Dosage: UNK
  3. TERIPARATIDE [Interacting]
     Active Substance: TERIPARATIDE
     Indication: OSTEOPOROSIS
     Dosage: UNK UNK, DAILY
     Route: 058
     Dates: start: 20191108, end: 20200911

REACTIONS (11)
  - Urinary tract infection [Recovering/Resolving]
  - Drug interaction [Unknown]
  - Rheumatic disorder [Unknown]
  - Micturition urgency [Recovering/Resolving]
  - Listless [Unknown]
  - Dyspnoea [Unknown]
  - Fatigue [Unknown]
  - Incontinence [Recovering/Resolving]
  - Asthenia [Unknown]
  - Bone marrow oedema [Unknown]
  - Back disorder [Recovering/Resolving]

NARRATIVE: CASE EVENT DATE: 202007
